FAERS Safety Report 16637701 (Version 1)
Quarter: 2019Q3

REPORT INFORMATION
  Report Type: Spontaneous
  Country: US (occurrence: US)
  Receive Date: 20190726
  Receipt Date: 20190726
  Transmission Date: 20191004
  Serious: No
  Sender: FDA-Public Use
  Company Number: None

PATIENT
  Sex: Female

DRUGS (2)
  1. BENZOYL PEROXIDE WASH AND GEL [Suspect]
     Active Substance: BENZOYL PEROXIDE
  2. CLINDAMYCIN SOLUTION [Suspect]
     Active Substance: CLINDAMYCIN

REACTIONS (1)
  - Treatment failure [None]
